FAERS Safety Report 6125174 (Version 7)
Quarter: 2025Q2

REPORT INFORMATION
  Report Type: Spontaneous
  Country: FR (occurrence: FR)
  Receive Date: 20060911
  Receipt Date: 20250630
  Transmission Date: 20250717
  Serious: Yes (Death, Hospitalization, Other)
  Sender: SANOFI AVENTIS
  Company Number: FR-SANOFI-SYNTHELABO-A02200602217

PATIENT
  Age: 19 Month
  Sex: Female
  Weight: 10 kg

DRUGS (18)
  1. FLUDARABINE PHOSPHATE [Suspect]
     Active Substance: FLUDARABINE PHOSPHATE
     Indication: Acute myeloid leukaemia
     Dosage: 10 MG,QD
     Route: 042
     Dates: start: 20060525, end: 20060529
  2. FASTURTEC [Suspect]
     Active Substance: RASBURICASE
     Indication: Gout
     Dosage: 1.5 MG,QD
     Route: 042
     Dates: start: 20060519
  3. FASTURTEC [Suspect]
     Active Substance: RASBURICASE
     Indication: Tumour lysis syndrome
     Dosage: 1.5 MG,QD
     Route: 042
     Dates: start: 20060523, end: 20060523
  4. FASTURTEC [Suspect]
     Active Substance: RASBURICASE
     Dosage: 1.5 MG,QD
     Route: 042
     Dates: start: 20060526, end: 20060526
  5. FASTURTEC [Suspect]
     Active Substance: RASBURICASE
     Dosage: UNK UNK,QD
     Route: 042
     Dates: start: 20060621, end: 20060621
  6. FASTURTEC [Suspect]
     Active Substance: RASBURICASE
     Dosage: UNK UNK,QD
     Route: 042
     Dates: start: 20060625, end: 20060625
  7. FASTURTEC [Suspect]
     Active Substance: RASBURICASE
     Route: 042
     Dates: start: 20060523, end: 20060525
  8. LENOGRASTIM [Suspect]
     Active Substance: LENOGRASTIM
     Indication: Agranulocytosis
     Dosage: 13 IU, QD
     Route: 042
     Dates: start: 20060524, end: 20060529
  9. ONDANSETRON HYDROCHLORIDE [Suspect]
     Active Substance: ONDANSETRON HYDROCHLORIDE
     Indication: Vomiting
     Dosage: 4 MG, BID
     Route: 048
     Dates: start: 20060523
  10. ONDANSETRON HYDROCHLORIDE [Suspect]
     Active Substance: ONDANSETRON HYDROCHLORIDE
     Indication: Nausea
  11. DAUNORUBICIN [Suspect]
     Active Substance: DAUNORUBICIN
     Indication: Acute myeloid leukaemia
     Dosage: 220 MG/M2,QD (100 MG DAILY)
     Route: 042
     Dates: start: 20060525, end: 20060525
  12. CYTARABINE [Suspect]
     Active Substance: CYTARABINE
     Indication: Acute myeloid leukaemia
     Dosage: 26 MG,QD
     Route: 037
     Dates: start: 20060524
  13. CYTARABINE [Suspect]
     Active Substance: CYTARABINE
     Dosage: 26 MG,QD
     Route: 042
     Dates: start: 20060524, end: 20060524
  14. BACTRIM [Concomitant]
     Active Substance: SULFAMETHOXAZOLE\TRIMETHOPRIM
     Indication: Antifungal prophylaxis
     Dates: start: 20060524
  15. BACTRIM [Concomitant]
     Active Substance: SULFAMETHOXAZOLE\TRIMETHOPRIM
     Dates: start: 20060524
  16. ALIZAPRIDE HYDROCHLORIDE [Concomitant]
     Active Substance: ALIZAPRIDE HYDROCHLORIDE
     Dates: start: 20060524
  17. ALIZAPRIDE HYDROCHLORIDE [Concomitant]
     Active Substance: ALIZAPRIDE HYDROCHLORIDE
     Dates: start: 20060524
  18. CARDIOXANE [Concomitant]
     Active Substance: DEXRAZOXANE HYDROCHLORIDE
     Route: 042
     Dates: start: 200605, end: 200605

REACTIONS (13)
  - Respiratory distress [Unknown]
  - Pain [Unknown]
  - Accidental overdose [Unknown]
  - Product administration error [Unknown]
  - Fatigue [Unknown]
  - Chills [Unknown]
  - Cardiac arrest [Fatal]
  - Cardiac failure [Unknown]
  - Tachycardia [Unknown]
  - Tachypnoea [Unknown]
  - Bone marrow failure [Fatal]
  - Vomiting [Unknown]
  - Off label use [Unknown]

NARRATIVE: CASE EVENT DATE: 20060525
